FAERS Safety Report 15956696 (Version 1)
Quarter: 2019Q1

REPORT INFORMATION
  Report Type: Report from Study
  Country: BE (occurrence: BE)
  Receive Date: 20190213
  Receipt Date: 20190213
  Transmission Date: 20190417
  Serious: Yes (Death)
  Sender: FDA-Public Use
  Company Number: BE-MYLANLABS-2019M1011997

PATIENT

DRUGS (1)
  1. IMATINIB. [Suspect]
     Active Substance: IMATINIB MESYLATE
     Indication: GASTROINTESTINAL STROMAL TUMOUR
     Dosage: 800 MG, QD (DISCONTINUED 4 MONTHS BEFORE DEATH)
     Route: 048
     Dates: start: 20170117

REACTIONS (3)
  - Drug resistance [Unknown]
  - Malignant neoplasm progression [Fatal]
  - Gastrointestinal stromal tumour [Fatal]
